FAERS Safety Report 12157939 (Version 1)
Quarter: 2016Q1

REPORT INFORMATION
  Report Type: Spontaneous
  Country: US (occurrence: US)
  Receive Date: 20160308
  Receipt Date: 20160308
  Transmission Date: 20160526
  Serious: No
  Sender: FDA-Public Use
  Company Number: US-JNJFOC-20150121710

PATIENT
  Sex: Female
  Weight: 60 kg

DRUGS (10)
  1. IMBRUVICA [Suspect]
     Active Substance: IBRUTINIB
     Indication: MANTLE CELL LYMPHOMA
     Route: 048
     Dates: start: 201312
  2. KLOR-CON [Concomitant]
     Active Substance: POTASSIUM CHLORIDE
  3. MIRALAX [Concomitant]
     Active Substance: POLYETHYLENE GLYCOL 3350
  4. LORTAB [Concomitant]
     Active Substance: ACETAMINOPHEN\HYDROCODONE BITARTRATE
  5. RECLAST [Concomitant]
     Active Substance: ZOLEDRONIC ACID
  6. DIOVAN [Concomitant]
     Active Substance: VALSARTAN
  7. EXFORGE [Concomitant]
     Active Substance: AMLODIPINE BESYLATE\VALSARTAN
  8. FISH OIL [Concomitant]
     Active Substance: FISH OIL
  9. LEVOXYL [Concomitant]
     Active Substance: LEVOTHYROXINE SODIUM
  10. ZEGERID [Concomitant]
     Active Substance: OMEPRAZOLE\SODIUM BICARBONATE

REACTIONS (4)
  - Arthritis [Not Recovered/Not Resolved]
  - Muscle spasms [Not Recovered/Not Resolved]
  - Myalgia [Not Recovered/Not Resolved]
  - Pain [Not Recovered/Not Resolved]
